FAERS Safety Report 14098565 (Version 1)
Quarter: 2017Q4

REPORT INFORMATION
  Report Type: Spontaneous
  Country: US (occurrence: US)
  Receive Date: 20171017
  Receipt Date: 20171017
  Transmission Date: 20180321
  Serious: Yes (Death, Other)
  Sender: FDA-Public Use
  Company Number: US-FERRINGPH-2017FE04898

PATIENT

DRUGS (3)
  1. CERVIDIL [Suspect]
     Active Substance: DINOPROSTONE
     Indication: LABOUR INDUCTION
     Dosage: UNK, ONCE/SINGLE
     Route: 067
     Dates: start: 20170929
  2. CERVIDIL [Suspect]
     Active Substance: DINOPROSTONE
     Dosage: UNK, ONCE/SINGLE
     Route: 067
     Dates: start: 20170930
  3. CERVIDIL [Suspect]
     Active Substance: DINOPROSTONE
     Dosage: UNK, ONCE/SINGLE
     Route: 067
     Dates: start: 20170929

REACTIONS (5)
  - Anaphylactoid syndrome of pregnancy [Fatal]
  - Overdose [Unknown]
  - Disseminated intravascular coagulation [Fatal]
  - Off label use [Unknown]
  - Product use issue [Unknown]

NARRATIVE: CASE EVENT DATE: 20170929
